FAERS Safety Report 23099979 (Version 2)
Quarter: 2023Q4

REPORT INFORMATION
  Report Type: Spontaneous
  Country: US (occurrence: US)
  Receive Date: 20231024
  Receipt Date: 20231227
  Transmission Date: 20240109
  Serious: No
  Sender: FDA-Public Use
  Company Number: US-PFIZER INC-PV202300067741

PATIENT
  Age: 70 Year
  Sex: Female

DRUGS (3)
  1. XALKORI [Suspect]
     Active Substance: CRIZOTINIB
     Indication: Bronchial carcinoma
     Dosage: 250 MG, 2X/DAY
     Route: 048
     Dates: start: 20200901, end: 20210805
  2. XALKORI [Suspect]
     Active Substance: CRIZOTINIB
     Dosage: 250 MG, 1X/DAY (1 P.O. Q. DAY)
     Route: 048
     Dates: start: 20231017
  3. XALKORI [Suspect]
     Active Substance: CRIZOTINIB
     Dosage: 250 MG, 1X/DAY (1 P.O. Q. DAY)
     Route: 048
     Dates: start: 20231214

REACTIONS (2)
  - Off label use [Unknown]
  - Memory impairment [Unknown]
